FAERS Safety Report 4818651-9 (Version None)
Quarter: 2005Q4

REPORT INFORMATION
  Report Type: 
  Country: None (occurrence: None)
  Receive Date: 20051101
  Receipt Date: 20051026
  Transmission Date: 20060501
  Serious: Yes (Other)
  Sender: FDA-Public Use
  Company Number: PHO-2005-035

PATIENT
  Age: 73 Year
  Sex: Male

DRUGS (6)
  1. PHOTOFRIN [Suspect]
     Indication: MALIGNANT PLEURAL EFFUSION
     Dosage: 169 MG
     Dates: start: 20051018
  2. LANZOPRAZOLE (PREVACID) [Concomitant]
  3. CELEBREX [Concomitant]
  4. WELLBUTRIN [Concomitant]
  5. FORMOTEROL FUMARATE [Concomitant]
  6. XANAX [Concomitant]

REACTIONS (1)
  - CHYLOTHORAX [None]
